FAERS Safety Report 7407006-9 (Version None)
Quarter: 2011Q2

REPORT INFORMATION
  Report Type: 
  Country: None (occurrence: None)
  Receive Date: 20110411
  Receipt Date: 20110405
  Transmission Date: 20111010
  Serious: No
  Sender: FDA-Public Use
  Company Number: US-PFIZER INC-2011075255

PATIENT
  Sex: Male

DRUGS (1)
  1. LYRICA [Suspect]
     Indication: DIABETIC NEUROPATHY
     Dosage: 50 MG, 2X/DAY
     Dates: start: 20110401, end: 20110401

REACTIONS (8)
  - DRY MOUTH [None]
  - LOGORRHOEA [None]
  - OEDEMA PERIPHERAL [None]
  - BALANCE DISORDER [None]
  - MUSCLE TWITCHING [None]
  - TREMOR [None]
  - FALL [None]
  - HYPERSOMNIA [None]
